FAERS Safety Report 5627592-9 (Version None)
Quarter: 2008Q1

REPORT INFORMATION
  Report Type: 
  Country: None (occurrence: None)
  Receive Date: 20080215
  Receipt Date: 20080206
  Transmission Date: 20080703
  Serious: Yes (Other)
  Sender: FDA-Public Use
  Company Number: US-ROCHE-546028

PATIENT
  Sex: Female

DRUGS (3)
  1. BONIVA [Suspect]
     Indication: BONE DENSITOMETRY
     Route: 065
     Dates: start: 20080104
  2. THYROLAR [Concomitant]
  3. PREDNISONE TAB [Concomitant]

REACTIONS (5)
  - MUSCLE SPASMS [None]
  - MYALGIA [None]
  - OEDEMA PERIPHERAL [None]
  - RED BLOOD CELL SEDIMENTATION RATE INCREASED [None]
  - THERAPY REGIMEN CHANGED [None]
